FAERS Safety Report 4739206-0 (Version None)
Quarter: 2005Q3

REPORT INFORMATION
  Report Type: 
  Country: None (occurrence: None)
  Receive Date: 20050810
  Receipt Date: 20050518
  Transmission Date: 20060218
  Serious: No
  Sender: FDA-Public Use
  Company Number: SUS1-2005-00274

PATIENT
  Sex: Female

DRUGS (2)
  1. PAXIL CR [Suspect]
     Indication: DEPRESSION
     Dosage: 25MG PER DAY
     Route: 048
     Dates: start: 20021201
  2. AGRYLIN [Suspect]
     Indication: PLATELET DISORDER
     Dosage: 5MG PER DAY
     Route: 048
     Dates: start: 20021201

REACTIONS (2)
  - NIGHT SWEATS [None]
  - SELF ESTEEM DECREASED [None]
